FAERS Safety Report 17808922 (Version 1)
Quarter: 2020Q2

REPORT INFORMATION
  Report Type: Spontaneous
  Country: US (occurrence: US)
  Receive Date: 20200520
  Receipt Date: 20200520
  Transmission Date: 20200714
  Serious: Yes (Hospitalization)
  Sender: FDA-Public Use
  Company Number: US-MYLANLABS-2020M1049925

PATIENT
  Age: 68 Year
  Sex: Male

DRUGS (1)
  1. VANCOMYCIN [Suspect]
     Active Substance: VANCOMYCIN
     Indication: PNEUMONIA STAPHYLOCOCCAL
     Dosage: UNK
     Route: 065

REACTIONS (6)
  - Henoch-Schonlein purpura [Recovered/Resolved]
  - Haematuria [Recovering/Resolving]
  - Nephritis [Recovered/Resolved]
  - Proteinuria [Recovering/Resolving]
  - Renal impairment [Recovering/Resolving]
  - Haematochezia [Unknown]
